FAERS Safety Report 6414509-2 (Version None)
Quarter: 2009Q4

REPORT INFORMATION
  Report Type: 
  Country: None (occurrence: None)
  Receive Date: 20091026
  Receipt Date: 20091014
  Transmission Date: 20100525
  Serious: Yes (Other)
  Sender: FDA-Public Use
  Company Number: US-WYE-H11631709

PATIENT
  Sex: Female

DRUGS (5)
  1. ADVIL [Suspect]
     Indication: MIGRAINE
     Dosage: UNKNOWN
     Route: 048
     Dates: start: 20090801
  2. XANAX [Concomitant]
     Dosage: UNKNOWN
     Route: 048
     Dates: start: 20090921
  3. THYROID TAB [Concomitant]
     Dosage: UNKNOWN
     Route: 048
  4. MOTRIN [Interacting]
     Indication: MIGRAINE
     Dosage: UNKNOWN
     Route: 048
     Dates: start: 20090801
  5. METHOTREXATE [Interacting]
     Dosage: UNKNOWN
     Route: 065

REACTIONS (2)
  - DRUG INTERACTION [None]
  - THROMBOSIS [None]
